FAERS Safety Report 13336083 (Version 1)
Quarter: 2017Q1

REPORT INFORMATION
  Report Type: Spontaneous
  Country: CH (occurrence: CH)
  Receive Date: 20170314
  Receipt Date: 20170314
  Transmission Date: 20170428
  Serious: Yes (Disabling, Other)
  Sender: FDA-Public Use
  Company Number: CH-ABBVIE-17P-151-1905754-00

PATIENT
  Sex: Female

DRUGS (2)
  1. DEPAKINE [Suspect]
     Active Substance: VALPROATE SODIUM
     Indication: MATERNAL EXPOSURE TIMING UNSPECIFIED
     Route: 064
  2. LAMICTAL [Suspect]
     Active Substance: LAMOTRIGINE
     Indication: MATERNAL EXPOSURE TIMING UNSPECIFIED
     Route: 064

REACTIONS (8)
  - Autism [Not Recovered/Not Resolved]
  - Foetal exposure during pregnancy [Unknown]
  - Apathy [Unknown]
  - Mental impairment [Unknown]
  - Hyperacusis [Unknown]
  - Speech disorder developmental [Unknown]
  - Cognitive disorder [Unknown]
  - Emotional disorder [Unknown]

NARRATIVE: CASE EVENT DATE: 2006
